FAERS Safety Report 6976618-9 (Version None)
Quarter: 2010Q3

REPORT INFORMATION
  Report Type: 
  Country: None (occurrence: None)
  Receive Date: 20100910
  Receipt Date: 20090505
  Transmission Date: 20110219
  Serious: No
  Sender: FDA-Public Use
  Company Number: US-WYE-H09229509

PATIENT
  Sex: Female

DRUGS (2)
  1. PRISTIQ [Suspect]
     Indication: DEPRESSION
     Dosage: 50 MG EVERY 1 TOT
     Route: 048
     Dates: start: 20090504, end: 20090504
  2. HYPERICUM PERFORATUM [Concomitant]

REACTIONS (4)
  - ANORGASMIA [None]
  - FEELING HOT [None]
  - INSOMNIA [None]
  - NERVOUSNESS [None]
